FAERS Safety Report 6694836-4 (Version None)
Quarter: 2010Q2

REPORT INFORMATION
  Report Type: 
  Country: None (occurrence: None)
  Receive Date: 20100423
  Receipt Date: 20100421
  Transmission Date: 20101027
  Serious: No
  Sender: FDA-Public Use
  Company Number: US-ROXANE LABORATORIES, INC.-2010-RO-00455RO

PATIENT
  Sex: Female

DRUGS (3)
  1. FLUTICASONE PROPIONATE [Suspect]
     Indication: MULTIPLE ALLERGIES
     Route: 045
     Dates: start: 20100406
  2. ZYRTEC [Concomitant]
     Indication: MULTIPLE ALLERGIES
  3. BENADRYL [Concomitant]
     Indication: MULTIPLE ALLERGIES

REACTIONS (1)
  - DRUG INEFFECTIVE [None]
